FAERS Safety Report 12812753 (Version 3)
Quarter: 2017Q3

REPORT INFORMATION
  Report Type: Report from Study
  Country: CN (occurrence: CN)
  Receive Date: 20161005
  Receipt Date: 20170714
  Transmission Date: 20171127
  Serious: Yes (Death)
  Sender: FDA-Public Use
  Company Number: CN-B.I. PHARMACEUTICALS,INC./RIDGEFIELD-2016-BI-58912BI

PATIENT
  Age: 64 Year
  Sex: Male
  Weight: 71.5 kg

DRUGS (1)
  1. BIBF 1120 [Suspect]
     Active Substance: NINTEDANIB
     Indication: IDIOPATHIC PULMONARY FIBROSIS
     Route: 048
     Dates: start: 20160726

REACTIONS (2)
  - Hypobarism [Fatal]
  - Sudden death [Fatal]

NARRATIVE: CASE EVENT DATE: 20160726
